FAERS Safety Report 4620168-1 (Version None)
Quarter: 2005Q1

REPORT INFORMATION
  Report Type: 
  Country: None (occurrence: None)
  Receive Date: 20050321
  Receipt Date: 20050321
  Transmission Date: 20050727
  Serious: Yes (Hospitalization)
  Sender: FDA-Public Use
  Company Number: None

PATIENT
  Sex: Female
  Weight: 63.05 kg

DRUGS (8)
  1. REMODULIN [Suspect]
     Dosage: 84 NG/KG/MIN
     Dates: start: 20040422
  2. TIAZEC [Concomitant]
  3. DIOVAN [Concomitant]
  4. ALDACTONE [Concomitant]
  5. ZOLOFT [Concomitant]
  6. ESTROGEN [Concomitant]
  7. ALBUTEROL [Concomitant]
  8. OMNICEF [Concomitant]

REACTIONS (5)
  - HAEMODYNAMIC INSTABILITY [None]
  - PERICARDIAL EFFUSION [None]
  - PERICARDITIS [None]
  - PLEURAL EFFUSION [None]
  - PLEURISY [None]
